FAERS Safety Report 7257156-5 (Version None)
Quarter: 2011Q1

REPORT INFORMATION
  Report Type: 
  Country: None (occurrence: None)
  Receive Date: 20110129
  Receipt Date: 20100720
  Transmission Date: 20110831
  Serious: No
  Sender: FDA-Public Use
  Company Number: US-ABBOTT-10P-163-0658606-00

PATIENT
  Age: 29 Year
  Sex: Female

DRUGS (5)
  1. XANAX [Concomitant]
     Indication: ANXIETY
  2. VICODIN [Concomitant]
     Indication: PAIN
  3. HUMIRA [Suspect]
     Indication: CROHN'S DISEASE
     Dates: start: 20100626
  4. ATENOLOL [Concomitant]
     Indication: BLOOD PRESSURE
  5. ATENOLOL [Concomitant]
     Indication: MITRAL VALVE PROLAPSE

REACTIONS (4)
  - LYMPHADENOPATHY [None]
  - OROPHARYNGEAL PAIN [None]
  - NASAL CONGESTION [None]
  - EAR INFECTION [None]
